FAERS Safety Report 14959752 (Version 6)
Quarter: 2019Q3

REPORT INFORMATION
  Report Type: Report from Study
  Country: JP (occurrence: JP)
  Receive Date: 20180531
  Receipt Date: 20190808
  Transmission Date: 20191004
  Serious: Yes (Life-Threatening, Hospitalization)
  Sender: FDA-Public Use
  Company Number: JP-PFIZER INC-2018218866

PATIENT
  Age: 64 Year
  Sex: Female
  Weight: 50 kg

DRUGS (25)
  1. SIMPONI [Concomitant]
     Active Substance: GOLIMUMAB
     Dosage: 2 AMPOULES, UNK
     Route: 058
     Dates: start: 20170517
  2. PREDNISOLONE. [Concomitant]
     Active Substance: PREDNISOLONE
     Dosage: 2 MG, DAILY
     Route: 048
     Dates: end: 20160801
  3. RHEUMATREX [Suspect]
     Active Substance: METHOTREXATE SODIUM
     Dosage: 10 MG, WEEKLY
     Route: 048
     Dates: start: 20121225, end: 20170403
  4. LYRICA [Concomitant]
     Active Substance: PREGABALIN
     Indication: NEURALGIA
     Dosage: 2 CAPSULES, UNK
     Route: 048
     Dates: start: 20160125
  5. XELJANZ [Suspect]
     Active Substance: TOFACITINIB CITRATE
     Dosage: 5 MG, TWICE A DAY
     Route: 048
     Dates: start: 20170307, end: 20170516
  6. LOXONIN [Concomitant]
     Active Substance: LOXOPROFEN SODIUM
     Dosage: 2 TABLETS UNK
     Route: 048
     Dates: start: 20151204
  7. PARIET [Concomitant]
     Active Substance: RABEPRAZOLE SODIUM
     Indication: PROPHYLAXIS
     Dosage: 1 TABLETS
     Route: 048
  8. FLUTIFORM [Concomitant]
     Active Substance: FLUTICASONE PROPIONATE\FORMOTEROL FUMARATE
     Indication: ASTHMA
     Dosage: UNK
     Route: 055
     Dates: start: 20151228
  9. KENACORT-A [Concomitant]
     Active Substance: TRIAMCINOLONE ACETONIDE
     Indication: NEURALGIA
     Dosage: UNK
     Route: 030
     Dates: start: 20160419
  10. XELJANZ [Suspect]
     Active Substance: TOFACITINIB CITRATE
     Indication: RHEUMATOID ARTHRITIS
     Dosage: 5 MG, TWICE A DAY
     Route: 048
     Dates: start: 20151204, end: 20170228
  11. AZULFIDINE EN-TABS [Concomitant]
     Active Substance: SULFASALAZINE
     Dosage: 1000 MG, UNK
     Route: 048
     Dates: start: 20130903, end: 20171122
  12. EDIROL [Concomitant]
     Active Substance: ELDECALCITOL
     Route: 048
  13. XYLOCAINE [Concomitant]
     Active Substance: LIDOCAINE HYDROCHLORIDE
     Indication: NEURALGIA
     Dosage: UNK
     Dates: start: 20160419
  14. KIPRES [Concomitant]
     Active Substance: MONTELUKAST SODIUM
     Indication: ASTHMA
     Dosage: 1 DF, UNK
     Route: 048
     Dates: start: 20151228
  15. ADOAIR [Concomitant]
     Active Substance: FLUTICASONE PROPIONATE\SALMETEROL XINAFOATE
     Dosage: UNK
     Route: 055
  16. BISOLVON [Concomitant]
     Active Substance: BROMHEXINE HYDROCHLORIDE
     Dosage: 3 TABLETS, UNK
     Route: 048
  17. RHEUMATREX [Suspect]
     Active Substance: METHOTREXATE SODIUM
     Dosage: 6 MG, WEEKLY
     Route: 048
     Dates: start: 20170404, end: 20180727
  18. SIMPONI [Concomitant]
     Active Substance: GOLIMUMAB
     Dosage: 2 AMPOULES, UNK
     Route: 058
     Dates: start: 20110922, end: 20120724
  19. RECALBON [Concomitant]
     Dosage: UNK
     Route: 048
  20. SIMPONI [Concomitant]
     Active Substance: GOLIMUMAB
     Dosage: 2 AMPOULES, UNK
     Route: 058
     Dates: start: 20121127, end: 20151028
  21. PREDNISOLONE. [Concomitant]
     Active Substance: PREDNISOLONE
     Dosage: 1 MG, DAILY
     Route: 048
     Dates: start: 20160802, end: 20170823
  22. THEOLONG [Concomitant]
     Active Substance: THEOPHYLLINE ANHYDROUS
     Dosage: 2 TABLETS, UNK
     Route: 048
  23. METHYCOBAL [Concomitant]
     Active Substance: METHYLCOBALAMIN
     Indication: NEURALGIA
     Dosage: 2 DF, UNK
     Route: 048
     Dates: start: 20160125
  24. SPIRIVA [Concomitant]
     Active Substance: TIOTROPIUM BROMIDE MONOHYDRATE
     Indication: ASTHMA
     Dosage: UNK
     Route: 055
     Dates: start: 20151228
  25. MUCODYNE [Concomitant]
     Active Substance: CARBOCYSTEINE
     Dosage: 3 TABLETS, UNK
     Route: 048

REACTIONS (1)
  - Breast cancer [Not Recovered/Not Resolved]

NARRATIVE: CASE EVENT DATE: 201706
